FAERS Safety Report 7726147-X (Version None)
Quarter: 2011Q3

REPORT INFORMATION
  Report Type: 
  Country: None (occurrence: None)
  Receive Date: 20110902
  Receipt Date: 20110825
  Transmission Date: 20111222
  Serious: Yes (Hospitalization, Other)
  Sender: FDA-Public Use
  Company Number: US-AMGEN-USASP2011043791

PATIENT
  Age: 65 Year
  Sex: Female

DRUGS (2)
  1. ENBREL [Suspect]
     Indication: RHEUMATOID ARTHRITIS
     Dosage: 50 MG, QWK
     Dates: start: 20110401
  2. ORENCIA [Concomitant]

REACTIONS (11)
  - DRUG HYPERSENSITIVITY [None]
  - URINARY TRACT INFECTION [None]
  - BLOOD POTASSIUM DECREASED [None]
  - ABASIA [None]
  - ASTHENIA [None]
  - THERAPEUTIC RESPONSE DECREASED [None]
  - MUSCULOSKELETAL STIFFNESS [None]
  - DYSSTASIA [None]
  - KNEE ARTHROPLASTY [None]
  - ARTHRALGIA [None]
  - FATIGUE [None]
